FAERS Safety Report 8433773-1 (Version None)
Quarter: 2012Q2

REPORT INFORMATION
  Report Type: 
  Country: None (occurrence: None)
  Receive Date: 20120613
  Receipt Date: 20120612
  Transmission Date: 20120825
  Serious: Yes (Hospitalization)
  Sender: FDA-Public Use
  Company Number: JP-PFIZER INC-2012129400

PATIENT
  Age: 65 Year
  Sex: Female

DRUGS (3)
  1. ZITHROMAX [Suspect]
     Indication: GINGIVITIS
     Dosage: UNK
  2. WARFARIN [Concomitant]
     Dosage: UNK
     Route: 048
  3. ZITHROMAX [Suspect]
     Indication: DENTAL CARE

REACTIONS (1)
  - HEPATIC ARTERY ANEURYSM [None]
